FAERS Safety Report 6608131 (Version 2)
Quarter: 2012Q4

REPORT INFORMATION
  Report Type: 
  Country: US (occurrence: US)
  Receive Date: 20080408
  Receipt Date: 20121213
  Transmission Date: 20130627
  Serious: Yes (Hospitalization)
  Sender: FDA-Public Use
  Company Number: US-BAYER-US-2006-026980

PATIENT
  Age: 41 Year
  Sex: Female
  Weight: 95 kg

DRUGS (3)
  1. YASMIN [Suspect]
     Indication: MENORRHAGIA
     Dosage: UNK, UNK
     Dates: start: 200607, end: 200609
  2. FERROUS SULFATE [Concomitant]
  3. MULTIVITAMINS [Concomitant]

REACTIONS (3)
  - Pulmonary embolism [Not Recovered/Not Resolved]
  - Musculoskeletal pain [Not Recovered/Not Resolved]
  - Off label use [None]
